FAERS Safety Report 6413172-4 (Version None)
Quarter: 2009Q4

REPORT INFORMATION
  Report Type: 
  Country: None (occurrence: None)
  Receive Date: 20091022
  Receipt Date: 20091022
  Transmission Date: 20100525
  Serious: Yes (Life-Threatening, Hospitalization)
  Sender: FDA-Public Use
  Company Number: None

PATIENT
  Age: 21 Year
  Sex: Female

DRUGS (1)
  1. ETONOGESTREL [Suspect]
     Dosage: 68 MG ONCE SQ
     Route: 058
     Dates: start: 20081101, end: 20090929

REACTIONS (2)
  - CHEST PAIN [None]
  - DEEP VEIN THROMBOSIS [None]
